FAERS Safety Report 12812246 (Version 1)
Quarter: 2016Q4

REPORT INFORMATION
  Report Type: Spontaneous
  Country: US (occurrence: US)
  Receive Date: 20161005
  Receipt Date: 20161005
  Transmission Date: 20170207
  Serious: No
  Sender: FDA-Public Use
  Company Number: US-AMGEN-USASP2016086514

PATIENT
  Age: 82 Year
  Sex: Female

DRUGS (16)
  1. VITAMIN B12 [Concomitant]
     Active Substance: CYANOCOBALAMIN
  2. METOPROLOL. [Concomitant]
     Active Substance: METOPROLOL
     Dosage: 50 MG, BID
  3. CLOPIDOGREL [Concomitant]
     Active Substance: CLOPIDOGREL BISULFATE
     Dosage: 75 MG, UNK
  4. METFORMIN [Concomitant]
     Active Substance: METFORMIN HYDROCHLORIDE
     Dosage: 500 MG, BID
  5. PROLIA [Suspect]
     Active Substance: DENOSUMAB
     Indication: OSTEOPOROSIS
     Dosage: UNK, UNK
     Route: 065
  6. RISPERIDONE. [Concomitant]
     Active Substance: RISPERIDONE
  7. ATORVASTATIN [Concomitant]
     Active Substance: ATORVASTATIN
     Dosage: 40 MG, UNK
  8. NOVOLOG [Concomitant]
     Active Substance: INSULIN ASPART
  9. LANTUS [Concomitant]
     Active Substance: INSULIN GLARGINE
  10. IRON [Concomitant]
     Active Substance: IRON
  11. INSULIN [Concomitant]
     Active Substance: INSULIN NOS
     Indication: DIABETES MELLITUS
  12. CALCIUM [Concomitant]
     Active Substance: CALCIUM
     Dosage: UNK UNK, INTERMITTENT
  13. CITRICAL [Concomitant]
     Active Substance: CALCIUM CITRATE
  14. SYNTHROID [Concomitant]
     Active Substance: LEVOTHYROXINE SODIUM
     Dosage: 0.75 MG, UNK
  15. LAMOTRIGINE. [Concomitant]
     Active Substance: LAMOTRIGINE
  16. CALCIUM WITH D3 [Concomitant]

REACTIONS (3)
  - Cough [Unknown]
  - Dry throat [Unknown]
  - Exostosis [Unknown]
